FAERS Safety Report 4998761-6 (Version None)
Quarter: 2006Q2

REPORT INFORMATION
  Report Type: 
  Country: None (occurrence: None)
  Receive Date: 20060509
  Receipt Date: 20060426
  Transmission Date: 20061013
  Serious: Yes (Hospitalization)
  Sender: FDA-Public Use
  Company Number: 2006056456

PATIENT
  Age: 27 Year
  Sex: Female

DRUGS (3)
  1. GEODON [Suspect]
     Indication: ILL-DEFINED DISORDER
  2. CELEXA [Concomitant]
  3. ATIVAN [Concomitant]

REACTIONS (1)
  - HALLUCINATION [None]
